FAERS Safety Report 19188547 (Version 1)
Quarter: 2021Q2

REPORT INFORMATION
  Report Type: Spontaneous
  Country: US (occurrence: US)
  Receive Date: 20210428
  Receipt Date: 20210428
  Transmission Date: 20210717
  Serious: No
  Sender: FDA-Public Use
  Company Number: US-HIKMA PHARMACEUTICALS USA INC.-US-H14001-20-02956

PATIENT

DRUGS (1)
  1. SODIUM FERRIC SODIUM GLUCONATE COMPLEX IN SUCROSE [Suspect]
     Active Substance: SODIUM FERRIC GLUCONATE COMPLEX
     Indication: PRODUCT USED FOR UNKNOWN INDICATION
     Route: 042

REACTIONS (1)
  - Extravasation [Unknown]
